FAERS Safety Report 8847047 (Version 1)
Quarter: 2012Q4

REPORT INFORMATION
  Report Type: Spontaneous
  Country: JP (occurrence: None)
  Receive Date: 20121016
  Receipt Date: 20121016
  Transmission Date: 20130627
  Serious: Yes (Other)
  Sender: FDA-Public Use
  Company Number: US-2012-10943

PATIENT
  Age: 47 Year
  Sex: Male

DRUGS (6)
  1. CILOSTAZOL [Suspect]
  2. AZATHIOPRINE [Suspect]
  3. ACYCLOVIR [Suspect]
  4. TACROLIMUS [Concomitant]
  5. METHYLPREDNISOLONE (METHYLPREDNISOLONE) [Concomitant]
  6. ANTILYMPHOCYTE GLOBULIN (ANTILYMPHOCYTE IMMUNOGLOBULIN (HORSE)) [Concomitant]

REACTIONS (5)
  - Hepatic function abnormal [None]
  - Liver injury [None]
  - Haemosiderosis [None]
  - Alanine aminotransferase increased [None]
  - Hepatic necrosis [None]
